FAERS Safety Report 17876513 (Version 5)
Quarter: 2020Q4

REPORT INFORMATION
  Report Type: Spontaneous
  Country: US (occurrence: US)
  Receive Date: 20200609
  Receipt Date: 20201112
  Transmission Date: 20210113
  Serious: No
  Sender: FDA-Public Use
  Company Number: US-PFIZER INC-2020216135

PATIENT
  Age: 15 Year
  Sex: Male
  Weight: 49.9 kg

DRUGS (2)
  1. GENOTROPIN [Suspect]
     Active Substance: SOMATROPIN
     Indication: GROWTH DISORDER
  2. GENOTROPIN [Suspect]
     Active Substance: SOMATROPIN
     Indication: SPINA BIFIDA
     Dosage: 1 MG, DAILY
     Dates: start: 201801

REACTIONS (3)
  - Drug dose omission by device [Unknown]
  - Device use issue [Unknown]
  - Device issue [Unknown]

NARRATIVE: CASE EVENT DATE: 20200601
